FAERS Safety Report 16088481 (Version 1)
Quarter: 2019Q1

REPORT INFORMATION
  Report Type: Spontaneous
  Country: US (occurrence: US)
  Receive Date: 20190319
  Receipt Date: 20190319
  Transmission Date: 20190418
  Serious: No
  Sender: FDA-Public Use
  Company Number: US-PFIZER INC-2019109128

PATIENT
  Age: 82 Year
  Sex: Female
  Weight: 79.38 kg

DRUGS (4)
  1. GABAPENTIN. [Suspect]
     Active Substance: GABAPENTIN
     Dosage: UNK, 3X/DAY [ONE CAPSULE IN THE MORNING, AND ONE IN THE EVENING AND ONE IN THE MIDDLE OF THE NIGHT ]
  2. GABAPENTIN. [Suspect]
     Active Substance: GABAPENTIN
     Dosage: 200 MG, UNK
  3. GABAPENTIN. [Suspect]
     Active Substance: GABAPENTIN
     Dosage: 3600 MG, DAILY
  4. GABAPENTIN. [Suspect]
     Active Substance: GABAPENTIN
     Indication: NEURALGIA
     Dosage: 400 MG, UNK
     Route: 048
     Dates: start: 2011

REACTIONS (1)
  - Drug ineffective for unapproved indication [Not Recovered/Not Resolved]

NARRATIVE: CASE EVENT DATE: 2018
